FAERS Safety Report 7169709-3 (Version None)
Quarter: 2010Q4

REPORT INFORMATION
  Report Type: 
  Country: None (occurrence: None)
  Receive Date: 20101217
  Receipt Date: 20101213
  Transmission Date: 20110411
  Serious: Yes (Hospitalization)
  Sender: FDA-Public Use
  Company Number: CZ-GENZYME-FABR-1001409

PATIENT

DRUGS (3)
  1. FABRAZYME [Suspect]
     Indication: FABRY'S DISEASE
     Dosage: 32.5 MG, Q2W
     Route: 042
     Dates: start: 20091019, end: 20100608
  2. IOHEXOL [Suspect]
     Indication: FABRY'S DISEASE
  3. PARACETAMOLUM [Concomitant]

REACTIONS (5)
  - COUGH [None]
  - LACRIMATION INCREASED [None]
  - PYREXIA [None]
  - RHINORRHOEA [None]
  - TREMOR [None]
